FAERS Safety Report 6763095-6 (Version None)
Quarter: 2010Q2

REPORT INFORMATION
  Report Type: 
  Country: None (occurrence: None)
  Receive Date: 20100609
  Receipt Date: 20100601
  Transmission Date: 20101027
  Serious: Yes (Other)
  Sender: FDA-Public Use
  Company Number: US-MYLANLABS-2010S1008526

PATIENT
  Age: 16 Year
  Sex: Male
  Weight: 97.9 kg

DRUGS (5)
  1. AMNESTEEM [Suspect]
     Indication: ACNE
     Route: 048
     Dates: start: 20100408, end: 20100508
  2. AMNESTEEM [Suspect]
     Indication: SCAR
     Route: 048
     Dates: start: 20100408, end: 20100508
  3. ZYRTEC [Concomitant]
  4. TYLENOL [Concomitant]
  5. ALBUTEROL [Concomitant]
     Route: 055

REACTIONS (6)
  - ANGER [None]
  - CRYING [None]
  - DEPRESSION [None]
  - IRRITABILITY [None]
  - SUICIDAL IDEATION [None]
  - VIOLENCE-RELATED SYMPTOM [None]
